FAERS Safety Report 6396680-4 (Version None)
Quarter: 2009Q4

REPORT INFORMATION
  Report Type: 
  Country: None (occurrence: None)
  Receive Date: 20091012
  Receipt Date: 20091008
  Transmission Date: 20100525
  Serious: Yes (Other)
  Sender: FDA-Public Use
  Company Number: US-B.I. PHARMACEUTICALS,INC./RIDGEFIELD-2009-BP-10884BP

PATIENT
  Sex: Male

DRUGS (10)
  1. SPIRIVA [Suspect]
     Indication: DYSPNOEA
     Dosage: 18 MCG
     Route: 055
     Dates: start: 20040101
  2. SPIRIVA [Suspect]
     Indication: PNEUMONECTOMY
  3. GEMFIBROZIL [Concomitant]
     Indication: BLOOD TRIGLYCERIDES INCREASED
     Dosage: 1200 MG
  4. NORVASC [Concomitant]
     Indication: HYPERTENSION
  5. INDERAL LA [Concomitant]
     Indication: TREMOR
  6. STARLIX [Concomitant]
     Indication: DIABETES MELLITUS
     Dosage: 360 MG
  7. METOPROLOL SUCCINATE EXTENDED RELEASE [Concomitant]
     Dosage: 100 MG
  8. AMLODIPL BENAZEPIRL [Concomitant]
  9. DIOVAN HCT [Concomitant]
  10. ALBUTEROL SULFATE AUTOHALER [Concomitant]

REACTIONS (6)
  - BLOOD URINE PRESENT [None]
  - FINGER DEFORMITY [None]
  - SARCOMA [None]
  - URINARY TRACT DISORDER [None]
  - URINE ANALYSIS ABNORMAL [None]
  - WHEEZING [None]
